FAERS Safety Report 17809396 (Version 2)
Quarter: 2020Q3

REPORT INFORMATION
  Report Type: Spontaneous
  Country: BR (occurrence: BR)
  Receive Date: 20200520
  Receipt Date: 20200819
  Transmission Date: 20201102
  Serious: Yes (Hospitalization, Other)
  Sender: FDA-Public Use
  Company Number: NVSC2020BR137886

PATIENT
  Age: 90 Year
  Sex: Female
  Weight: 52 kg

DRUGS (5)
  1. DIOVAN HCT [Suspect]
     Active Substance: HYDROCHLOROTHIAZIDE\VALSARTAN
     Indication: HYPERTENSION
     Dosage: 1 DF, QD (STARTED MORE THAN 2 YEARS AGO)
     Route: 048
     Dates: end: 202003
  2. METOPROLOL SUCCINATE. [Concomitant]
     Active Substance: METOPROLOL SUCCINATE
     Indication: ARRHYTHMIA
     Dosage: 50 MG, QD (MAH: MEDLEY AND ACCORD, STARTED 2 YEARS AGO)
     Route: 048
     Dates: end: 2020
  3. AMLODIPINE BESILATE [Suspect]
     Active Substance: AMLODIPINE BESYLATE
     Indication: HYPERTENSION
     Dosage: 1 DF, QD (MAH: TEUTO, STARTED END OF MAR 2020 OR BEGINNING OF APR 2020 AND STOPPED 15 DAYS LATER)
     Route: 048
     Dates: end: 202004
  4. DIOVAN [Concomitant]
     Active Substance: VALSARTAN
     Indication: HYPERTENSION
     Dosage: 1 DF, QD
     Route: 048
     Dates: start: 202004
  5. METOPROLOL SUCCINATE. [Concomitant]
     Active Substance: METOPROLOL SUCCINATE
     Dosage: 25 MG, QD (MAH: MEDLEY AND ACCORD, STARTED BEGINNING OF 2020)
     Route: 048
     Dates: start: 2020

REACTIONS (6)
  - Vomiting [Recovered/Resolved]
  - Pain [Recovered/Resolved]
  - Joint swelling [Recovered/Resolved]
  - Diverticulitis [Recovered/Resolved]
  - Peripheral swelling [Recovered/Resolved]
  - Blood sodium decreased [Recovered/Resolved]

NARRATIVE: CASE EVENT DATE: 20200305
